FAERS Safety Report 25122010 (Version 4)
Quarter: 2025Q4

REPORT INFORMATION
  Report Type: Spontaneous
  Country: US (occurrence: US)
  Receive Date: 20250326
  Receipt Date: 20251022
  Transmission Date: 20260118
  Serious: Yes (Other)
  Sender: ALEXION PHARMACEUTICALS
  Company Number: US-AstraZeneca-CH-00769964A

PATIENT
  Age: 69 Year
  Sex: Female
  Weight: 81.2 kg

DRUGS (6)
  1. TRUQAP [Suspect]
     Active Substance: CAPIVASERTIB
     Dosage: 200 MILLIGRAM, BID
     Dates: start: 20241028
  2. FASLODEX [Suspect]
     Active Substance: FULVESTRANT
     Dosage: UNK UNK, QMONTH
  3. FASLODEX [Suspect]
     Active Substance: FULVESTRANT
  4. TRIAMCINOLONE [Concomitant]
     Active Substance: TRIAMCINOLONE
     Route: 065
  5. ZOMETA [Concomitant]
     Active Substance: ZOLEDRONIC ACID
  6. LEVOTHYROXINE [Concomitant]
     Active Substance: LEVOTHYROXINE

REACTIONS (7)
  - Colitis ulcerative [Unknown]
  - Nausea [Recovered/Resolved]
  - Incontinence [Recovered/Resolved]
  - Rash [Unknown]
  - Diarrhoea [Unknown]
  - Positron emission tomogram abnormal [Unknown]
  - Joint swelling [Unknown]

NARRATIVE: CASE EVENT DATE: 20050101
